FAERS Safety Report 6247633-8 (Version None)
Quarter: 2009Q2

REPORT INFORMATION
  Report Type: 
  Country: None (occurrence: None)
  Receive Date: 20090626
  Receipt Date: 20090624
  Transmission Date: 20091009
  Serious: Yes (Hospitalization, Congenital Anomaly, Other)
  Sender: FDA-Public Use
  Company Number: US-RB-017332-09

PATIENT
  Sex: Female
  Weight: 1.84 kg

DRUGS (4)
  1. SUBOXONE [Suspect]
     Route: 064
     Dates: start: 20061214, end: 20070201
  2. SUBOXONE [Suspect]
     Route: 064
     Dates: start: 20070201
  3. SUBOXONE [Suspect]
     Dosage: DOSE VARIED DAILY
     Route: 064
     Dates: end: 20070703
  4. CLONIDINE [Concomitant]
     Indication: DRUG USE FOR UNKNOWN INDICATION
     Route: 064
     Dates: start: 20061101

REACTIONS (4)
  - CARDIAC SEPTAL DEFECT [None]
  - DRUG EXPOSURE DURING PREGNANCY [None]
  - PREMATURE BABY [None]
  - SMALL FOR DATES BABY [None]
